FAERS Safety Report 6839203-5 (Version None)
Quarter: 2010Q3

REPORT INFORMATION
  Report Type: 
  Country: None (occurrence: None)
  Receive Date: 20100709
  Receipt Date: 20100629
  Transmission Date: 20110219
  Serious: Yes (Death)
  Sender: FDA-Public Use
  Company Number: 632679

PATIENT
  Age: 35 Year
  Sex: Female
  Weight: 42 kg

DRUGS (8)
  1. DOPAMINE HYDROCHLORIDE [Suspect]
     Indication: DRUG THERAPY
     Dosage: 10 UG/KG/MIN INTRAVENOUS DRIP
  2. EPINEPHRINE [Suspect]
     Indication: DRUG THERAPY
     Dosage: 0.05 UG/KG/MIN, INTRAVENOUS DRIP
     Route: 041
  3. NOREPINEPHRINE [Suspect]
     Indication: DRUG THERAPY
     Dosage: 0.05 UG/KG/MIN, INTRAVENOUS DRIP
     Route: 041
  4. DOBUTAMINE HCL [Suspect]
     Indication: DRUG THERAPY
     Dosage: 5 UG/KG/MIN, INTRAVENOUS DRIP
     Route: 041
  5. VASOPRESSIN [Suspect]
     Dosage: 6 U/H, INTRAVENOUS DRIP
     Route: 041
  6. ANESTHETICS, GENERAL [Concomitant]
  7. ROCURONIUM [Concomitant]
  8. ATRACURIUM [Concomitant]

REACTIONS (16)
  - ACIDOSIS [None]
  - AIRWAY PEAK PRESSURE INCREASED [None]
  - ANURIA [None]
  - CARDIAC ARREST [None]
  - CONDITION AGGRAVATED [None]
  - DRUG EFFECT DECREASED [None]
  - GENERAL PHYSICAL HEALTH DETERIORATION [None]
  - HYPOPERFUSION [None]
  - LOSS OF CONSCIOUSNESS [None]
  - MUSCLE RIGIDITY [None]
  - OXYGEN SATURATION DECREASED [None]
  - POST PROCEDURAL COMPLICATION [None]
  - PULSE ABSENT [None]
  - TREATMENT FAILURE [None]
  - TRISMUS [None]
  - WRONG DRUG ADMINISTERED [None]
